FAERS Safety Report 5378127-X (Version None)
Quarter: 2007Q3

REPORT INFORMATION
  Report Type: 
  Country: None (occurrence: None)
  Receive Date: 20070705
  Receipt Date: 20070626
  Transmission Date: 20080115
  Serious: Yes (Other)
  Sender: FDA-Public Use
  Company Number: PHBS2007BR10533

PATIENT
  Age: 74 Year
  Sex: Female
  Weight: 82 kg

DRUGS (3)
  1. DIOVAN [Suspect]
     Indication: HYPERTENSION
     Dosage: 80 MG/DAY
     Route: 048
  2. DIOVAN HCT [Suspect]
     Indication: HYPERTENSION
  3. ALDACTONE [Concomitant]
     Indication: HYPERTENSION
     Dosage: 1 TABLET/DAY
     Route: 048

REACTIONS (7)
  - BLOOD POTASSIUM DECREASED [None]
  - FALL [None]
  - GAIT DISTURBANCE [None]
  - INSOMNIA [None]
  - MUSCLE SPASMS [None]
  - NERVOUS SYSTEM DISORDER [None]
  - VARICOSE VEIN [None]
